FAERS Safety Report 16763906 (Version 4)
Quarter: 2019Q4

REPORT INFORMATION
  Report Type: Spontaneous
  Country: JP (occurrence: JP)
  Receive Date: 20190902
  Receipt Date: 20191001
  Transmission Date: 20200122
  Serious: Yes (Hospitalization, Other)
  Sender: FDA-Public Use
  Company Number: JP-TEVA-2019-JP-005597J

PATIENT
  Age: 8 Decade
  Sex: Male

DRUGS (6)
  1. TELMISARTAN. [Concomitant]
     Active Substance: TELMISARTAN
     Dosage: 40 MILLIGRAM DAILY;
     Route: 048
  2. CONSTAN [ALPRAZOLAM] [Suspect]
     Active Substance: ALPRAZOLAM
     Dosage: 1.6MG-1.8MG
     Route: 048
     Dates: start: 201908
  3. CONSTAN [ALPRAZOLAM] [Suspect]
     Active Substance: ALPRAZOLAM
     Indication: PRODUCT USED FOR UNKNOWN INDICATION
     Dosage: 1.2 MILLIGRAM DAILY; FOR APPROXIMATELY 25 YEARS
     Route: 048
  4. CONSTAN [ALPRAZOLAM] [Suspect]
     Active Substance: ALPRAZOLAM
     Dosage: 0.8MG IN THE MORNING, 0.8MG IN THE AFTERNOON, 0.4MG IN THE EVENING
     Route: 048
     Dates: start: 2019
  5. ADALAT [Concomitant]
     Active Substance: NIFEDIPINE
     Dosage: 40 MILLIGRAM DAILY;
     Route: 048
  6. CARVEDILOL. [Concomitant]
     Active Substance: CARVEDILOL
     Dosage: 20 MILLIGRAM DAILY;
     Route: 048

REACTIONS (15)
  - Asthenia [Unknown]
  - Chest pain [Unknown]
  - Headache [Unknown]
  - Physical deconditioning [Unknown]
  - Muscular weakness [Unknown]
  - Intentional product use issue [Unknown]
  - Wrong technique in product usage process [Unknown]
  - Throat tightness [Unknown]
  - Eye pain [Unknown]
  - Limb discomfort [Unknown]
  - Dizziness [Unknown]
  - Gait disturbance [Unknown]
  - Dyspnoea [Unknown]
  - Hospitalisation [Unknown]
  - Respiratory depression [Unknown]

NARRATIVE: CASE EVENT DATE: 201805
